FAERS Safety Report 4827332-7 (Version None)
Quarter: 2005Q4

REPORT INFORMATION
  Report Type: 
  Country: None (occurrence: None)
  Receive Date: 20051114
  Receipt Date: 20040715
  Transmission Date: 20060501
  Serious: Yes (Hospitalization)
  Sender: FDA-Public Use
  Company Number: US-MERCK-0407USA01296

PATIENT
  Age: 63 Year
  Sex: Male
  Weight: 84 kg

DRUGS (8)
  1. VIOXX [Suspect]
     Indication: RHEUMATOID ARTHRITIS
     Route: 048
     Dates: start: 20010715, end: 20020717
  2. VIOXX [Suspect]
     Route: 048
     Dates: start: 20020101
  3. ZOCOR [Concomitant]
     Route: 048
     Dates: end: 20020701
  4. ZOCOR [Concomitant]
     Route: 048
     Dates: start: 20020701
  5. CLONIDINE [Concomitant]
     Route: 048
     Dates: end: 20020717
  6. TOPROL-XL [Concomitant]
     Route: 048
  7. FLOMAX [Concomitant]
     Route: 048
     Dates: end: 20020717
  8. IBUPROFEN [Concomitant]
     Route: 065
     Dates: start: 20010401

REACTIONS (34)
  - ALCOHOL WITHDRAWAL SYNDROME [None]
  - AORTIC VALVE INCOMPETENCE [None]
  - BARRETT'S OESOPHAGUS [None]
  - CAROTID ARTERY STENOSIS [None]
  - CEREBRAL ARTERY STENOSIS [None]
  - CEREBROVASCULAR ACCIDENT [None]
  - CHEST PAIN [None]
  - CONTUSION [None]
  - COUGH [None]
  - DIASTOLIC DYSFUNCTION [None]
  - DILATATION ATRIAL [None]
  - EMOTIONAL DISTRESS [None]
  - FALL [None]
  - GASTROINTESTINAL HAEMORRHAGE [None]
  - HYPERTENSION [None]
  - INSOMNIA [None]
  - IRON DEFICIENCY ANAEMIA [None]
  - MITRAL VALVE CALCIFICATION [None]
  - MITRAL VALVE INCOMPETENCE [None]
  - NOCTURIA [None]
  - PALPITATIONS [None]
  - RHINORRHOEA [None]
  - RIGHT VENTRICULAR SYSTOLIC PRESSURE DECREASED [None]
  - ROAD TRAFFIC ACCIDENT [None]
  - SINUSITIS [None]
  - SPINAL COMPRESSION FRACTURE [None]
  - SUPRAVENTRICULAR EXTRASYSTOLES [None]
  - TRANSIENT ISCHAEMIC ATTACK [None]
  - TREATMENT NONCOMPLIANCE [None]
  - UPPER LIMB FRACTURE [None]
  - URINARY INCONTINENCE [None]
  - VENTRICULAR EXTRASYSTOLES [None]
  - VENTRICULAR HYPERTROPHY [None]
  - WEIGHT INCREASED [None]
